FAERS Safety Report 22374662 (Version 3)
Quarter: 2023Q2

REPORT INFORMATION
  Report Type: Spontaneous
  Country: US (occurrence: US)
  Receive Date: 20230526
  Receipt Date: 20230605
  Transmission Date: 20230721
  Serious: No
  Sender: FDA-Public Use
  Company Number: US-002147023-NVSC2023US119924

PATIENT
  Age: 73 Year
  Sex: Female

DRUGS (2)
  1. XIIDRA [Suspect]
     Active Substance: LIFITEGRAST
     Indication: Dry eye
     Dosage: UNK UNK, BID
     Route: 047
     Dates: start: 20230508
  2. XIIDRA [Suspect]
     Active Substance: LIFITEGRAST
     Dosage: UNK, QD
     Route: 047

REACTIONS (7)
  - Dizziness [Unknown]
  - Dehydration [Unknown]
  - Productive cough [Unknown]
  - Visual acuity reduced [Unknown]
  - Dysgeusia [Unknown]
  - Product after taste [Unknown]
  - Product availability issue [Unknown]

NARRATIVE: CASE EVENT DATE: 20230516
